FAERS Safety Report 15127316 (Version 1)
Quarter: 2018Q3

REPORT INFORMATION
  Report Type: Spontaneous
  Country: FR (occurrence: FR)
  Receive Date: 20180710
  Receipt Date: 20180710
  Transmission Date: 20181010
  Serious: Yes (Life-Threatening, Hospitalization)
  Sender: FDA-Public Use
  Company Number: FR-TEVA-2018-FR-923983

PATIENT
  Age: 66 Year
  Sex: Male
  Weight: 59 kg

DRUGS (10)
  1. ATORVASTATIN [Suspect]
     Active Substance: ATORVASTATIN
     Indication: SUICIDE ATTEMPT
     Route: 048
     Dates: start: 20180515, end: 20180515
  2. ASPEGIC [Concomitant]
     Active Substance: ASPIRIN DL-LYSINE
  3. PAROXETINE (CHLORHYDRATE DE) ANHYDRE [Suspect]
     Active Substance: PAROXETINE
     Indication: SUICIDE ATTEMPT
     Route: 048
     Dates: start: 20180515, end: 20180515
  4. BISOCE 5 MG, COMPRIM? PELLICUL? S?CABLE [Suspect]
     Active Substance: BISOPROLOL
     Indication: SUICIDE ATTEMPT
     Route: 048
     Dates: start: 20180515, end: 20180515
  5. DOLIPRANE [Concomitant]
     Active Substance: ACETAMINOPHEN
  6. ZOPICLONE [Suspect]
     Active Substance: ZOPICLONE
     Indication: SUICIDE ATTEMPT
     Route: 048
     Dates: start: 20180515, end: 20180515
  7. VALSARTAN. [Suspect]
     Active Substance: VALSARTAN
     Indication: SUICIDE ATTEMPT
     Route: 048
     Dates: start: 20180515, end: 20180515
  8. CALCIDOSE VITAMINE D, POUDRE ORALE EN SACHET?DOSE [Concomitant]
     Active Substance: CALCIUM\CHOLECALCIFEROL
  9. BROMAZEPAM [Concomitant]
     Active Substance: BROMAZEPAM
  10. ALPRAZOLAM. [Concomitant]
     Active Substance: ALPRAZOLAM
     Dates: start: 20180515, end: 20180515

REACTIONS (2)
  - Somnolence [Recovered/Resolved]
  - Bradycardia [Recovered/Resolved]

NARRATIVE: CASE EVENT DATE: 20180515
